FAERS Safety Report 14410593 (Version 3)
Quarter: 2018Q2

REPORT INFORMATION
  Report Type: Spontaneous
  Country: CZ (occurrence: CZ)
  Receive Date: 20180119
  Receipt Date: 20180614
  Transmission Date: 20180711
  Serious: Yes (Death, Hospitalization, Other)
  Sender: FDA-Public Use
  Company Number: PHHY2016CZ138153

PATIENT
  Age: 39 Year
  Sex: Female

DRUGS (3)
  1. PACLITAXEL. [Suspect]
     Active Substance: PACLITAXEL
     Indication: OVARIAN CANCER STAGE III
     Dosage: UNK
     Route: 065
  2. TOPOTECAN [Suspect]
     Active Substance: TOPOTECAN HYDROCHLORIDE
     Indication: OVARIAN CANCER STAGE III
     Dosage: UNK
     Route: 065
  3. CARBOPLATIN. [Suspect]
     Active Substance: CARBOPLATIN
     Indication: OVARIAN CANCER STAGE III
     Dosage: UNK
     Route: 065

REACTIONS (9)
  - Neuropathy peripheral [Unknown]
  - Metastases to liver [Fatal]
  - Metastases to pelvis [Fatal]
  - Metastases to abdominal cavity [Fatal]
  - Ileus [Unknown]
  - Metastases to abdominal wall [Fatal]
  - Cancer pain [Fatal]
  - Malignant neoplasm progression [Fatal]
  - Neutropenia [Unknown]
